FAERS Safety Report 7656032-3 (Version None)
Quarter: 2011Q3

REPORT INFORMATION
  Report Type: 
  Country: None (occurrence: None)
  Receive Date: 20110801
  Receipt Date: 20110718
  Transmission Date: 20111222
  Serious: Yes (Disabling)
  Sender: FDA-Public Use
  Company Number: OSCN-NO-0902S-0107

PATIENT
  Age: 37 Year
  Sex: Female

DRUGS (11)
  1. OMNISCAN [Suspect]
     Indication: PRODUCT USED FOR UNKNOWN INDICATION
     Dosage: 40 ML, SINGLE DOSE, INTRAVENOUS
     Route: 042
     Dates: start: 20050707, end: 20050707
  2. AMLODIPINE (NORVASC) (AMLODIPINE) [Concomitant]
  3. PREDNISOLONE [Concomitant]
  4. ERYTHROPOIETIN (NEORECORMON) (EPOETIN BETA) [Concomitant]
  5. METOPROLOL SUCCINATE (SELO-ZOLD) (METOPROLOL SUCCINATE) [Concomitant]
  6. FUROSEMIDE (FURIX) (FUROSEMIDE) [Concomitant]
  7. SIROLIMUS (RAPAMUNE) (SIROLIMUS) [Concomitant]
  8. POTASSIUM CHLORIDE (KALEORID) (POTASSIUM CHLORIDE) [Concomitant]
  9. ACETYLSALICYLIC ACID (HJERTEMAGNYL) (ACETYLSALICYLIC ACID) [Concomitant]
  10. INSULIN HUMAN (ACTRAPID) (INSULIN HUMAN) [Concomitant]
  11. INSULIN HUMAN (INSULATARD) [Concomitant]

REACTIONS (6)
  - NEPHROGENIC SYSTEMIC FIBROSIS [None]
  - FATIGUE [None]
  - GAIT DISTURBANCE [None]
  - WOUND [None]
  - HAEMODIALYSIS [None]
  - KIDNEY FIBROSIS [None]
